FAERS Safety Report 6394485-1 (Version None)
Quarter: 2009Q4

REPORT INFORMATION
  Report Type: 
  Country: None (occurrence: None)
  Receive Date: 20091009
  Receipt Date: 20090925
  Transmission Date: 20100525
  Serious: Yes (Life-Threatening, Other)
  Sender: FDA-Public Use
  Company Number: SE-BAYER-200925167GPV

PATIENT
  Age: 46 Year
  Sex: Female

DRUGS (5)
  1. YASMIN [Suspect]
     Indication: DRUG USE FOR UNKNOWN INDICATION
  2. YASMIN [Suspect]
     Dates: start: 20060419, end: 20070601
  3. YASMINELLE [Suspect]
     Indication: DRUG USE FOR UNKNOWN INDICATION
     Dates: start: 20070620, end: 20090601
  4. MIRENA [Suspect]
     Indication: CONTRACEPTION
     Dates: start: 20090601, end: 20090101
  5. ZIDOVAL [Concomitant]
     Indication: VAGINITIS BACTERIAL
     Dosage: 7.500 MG/G 40 G 1*1
     Route: 067
     Dates: start: 20060419

REACTIONS (7)
  - ACNE [None]
  - AMENORRHOEA [None]
  - COLITIS ULCERATIVE [None]
  - DYSPNOEA [None]
  - LIMB DISCOMFORT [None]
  - PULMONARY EMBOLISM [None]
  - VAGINITIS BACTERIAL [None]
